FAERS Safety Report 7459808-0 (Version None)
Quarter: 2011Q2

REPORT INFORMATION
  Report Type: 
  Country: None (occurrence: None)
  Receive Date: 20110504
  Receipt Date: 20110504
  Transmission Date: 20111010
  Serious: No
  Sender: FDA-Public Use
  Company Number: None

PATIENT
  Age: 43 Year
  Sex: Female
  Weight: 72.1219 kg

DRUGS (1)
  1. NASONEX [Suspect]
     Indication: SINUS CONGESTION
     Dosage: 1 SQUIRT EACH NOSTRIL 2 X A DAY NASAL
     Route: 045
     Dates: start: 20110502, end: 20110502

REACTIONS (2)
  - AGEUSIA [None]
  - ANOSMIA [None]
